FAERS Safety Report 9284545 (Version 1)
Quarter: 2013Q2

REPORT INFORMATION
  Report Type: Spontaneous
  Country: BR (occurrence: BR)
  Receive Date: 20130511
  Receipt Date: 20130511
  Transmission Date: 20140414
  Serious: Yes (Other)
  Sender: FDA-Public Use
  Company Number: BR-ACCORD-017564

PATIENT
  Age: 49 Year
  Sex: Female
  Weight: 69.2 kg

DRUGS (4)
  1. PACLITAXEL [Suspect]
     Indication: BREAST CANCER
     Dosage: DOSE: 175 MG / M?, RECEIVED 1ST CYCLE
     Route: 042
     Dates: start: 20130424, end: 20130424
  2. DIPYRONE [Concomitant]
     Dosage: IF NECESSARY
     Dates: start: 20130111
  3. VENLAFAXINE [Concomitant]
  4. DIANE [Concomitant]

REACTIONS (5)
  - Hyperaemia [Recovered/Resolved]
  - Dyspnoea [Recovered/Resolved]
  - Chest pain [Recovered/Resolved]
  - Suffocation feeling [Recovered/Resolved]
  - Nausea [Recovered/Resolved]
